FAERS Safety Report 8933443 (Version 1)
Quarter: 2012Q4

REPORT INFORMATION
  Report Type: 
  Country: ES (occurrence: ES)
  Receive Date: 20121128
  Receipt Date: 20121128
  Transmission Date: 20130627
  Serious: Yes (Hospitalization)
  Sender: FDA-Public Use
  Company Number: ES-UCBSA-071774

PATIENT
  Age: 39 Year
  Sex: Male
  Weight: 174 kg

DRUGS (3)
  1. LEVETIRACETAM [Suspect]
     Dates: start: 2007
  2. BEVACIZUMAB [Suspect]
     Indication: GLIOBLASTOMA MULTIFORME
     Route: 042
     Dates: start: 20101223
  3. TEMOZOLOMIDE [Suspect]
     Indication: GLIOBLASTOMA MULTIFORME
     Route: 048
     Dates: start: 20101223

REACTIONS (1)
  - Epilepsy [Recovered/Resolved]
